FAERS Safety Report 7321673-X (Version None)
Quarter: 2011Q1

REPORT INFORMATION
  Report Type: 
  Country: None (occurrence: None)
  Receive Date: 20110223
  Receipt Date: 20110223
  Transmission Date: 20110831
  Serious: Yes (Hospitalization)
  Sender: FDA-Public Use
  Company Number: None

PATIENT
  Sex: Female
  Weight: 50.5 kg

DRUGS (1)
  1. ERBITUX [Suspect]
     Dosage: 390 MG

REACTIONS (5)
  - DEHYDRATION [None]
  - WEIGHT DECREASED [None]
  - DYSPHAGIA [None]
  - MUCOSAL INFLAMMATION [None]
  - ORAL PAIN [None]
